FAERS Safety Report 10730589 (Version 1)
Quarter: 2015Q1

REPORT INFORMATION
  Report Type: Spontaneous
  Country: GB (occurrence: GB)
  Receive Date: 20150122
  Receipt Date: 20150122
  Transmission Date: 20150721
  Serious: Yes (Congenital Anomaly, Other)
  Sender: FDA-Public Use
  Company Number: GB-PFIZER INC-2015020941

PATIENT

DRUGS (2)
  1. SULFASALAZINE. [Suspect]
     Active Substance: SULFASALAZINE
     Indication: RHEUMATOID ARTHRITIS
     Dosage: 1 G, 2X/DAY
     Route: 064
     Dates: start: 20130625, end: 20150107
  2. FOLIC ACID. [Concomitant]
     Active Substance: FOLIC ACID
     Route: 064

REACTIONS (9)
  - Congenital cystic kidney disease [Not Recovered/Not Resolved]
  - Joint contracture [Not Recovered/Not Resolved]
  - Congenital ectopic bladder [Not Recovered/Not Resolved]
  - Spina bifida [Not Recovered/Not Resolved]
  - Anal atresia [Not Recovered/Not Resolved]
  - Cleft palate [Not Recovered/Not Resolved]
  - Syndactyly [Not Recovered/Not Resolved]
  - Exomphalos [Not Recovered/Not Resolved]
  - Maternal exposure during pregnancy [Not Recovered/Not Resolved]
